FAERS Safety Report 18494959 (Version 1)
Quarter: 2020Q4

REPORT INFORMATION
  Report Type: Spontaneous
  Country: US (occurrence: US)
  Receive Date: 20201112
  Receipt Date: 20201112
  Transmission Date: 20210114
  Serious: No
  Sender: FDA-Public Use
  Company Number: US-BAYER-2020-244769

PATIENT
  Age: 90 Year
  Sex: Male

DRUGS (1)
  1. XOFIGO [Suspect]
     Active Substance: RADIUM RA-223 DICHLORIDE
     Indication: PROSTATE CANCER
     Dosage: 6,600 KBQ/VIAL DOSAGE 4 WEEK INTERVALS FOR 6 INJECTIONS
     Route: 042
     Dates: start: 20201020

REACTIONS (1)
  - Bladder catheterisation [None]
